FAERS Safety Report 6166583-9 (Version None)
Quarter: 2009Q2

REPORT INFORMATION
  Report Type: 
  Country: None (occurrence: None)
  Receive Date: 20090424
  Receipt Date: 20090422
  Transmission Date: 20091009
  Serious: Yes (Death)
  Sender: FDA-Public Use
  Company Number: TW-ASTRAZENECA-2008AP07270

PATIENT
  Age: 62 Year
  Sex: Male
  Weight: 66 kg

DRUGS (11)
  1. CRESTOR [Suspect]
     Indication: DYSLIPIDAEMIA
     Dosage: HALF A 10MG TABLET TAKEN DAILY
     Route: 048
     Dates: start: 20080804, end: 20080822
  2. ASPIRIN [Concomitant]
     Indication: CORONARY ARTERY DISEASE
  3. CLOPIDOGREL [Concomitant]
     Indication: CAROTID ARTERY DISEASE
  4. COLCHICINE [Concomitant]
     Indication: GOUT
  5. MODURETIC 5-50 [Concomitant]
     Indication: HYPERTENSION
     Dosage: 5/50
  6. ALPRAZOLAM [Concomitant]
     Indication: ANXIETY
  7. NIFEDIPINE [Concomitant]
     Indication: HYPERTENSION
  8. PANTOPRAZOLE SODIUM [Concomitant]
     Indication: PEPTIC ULCER
  9. CLONIDINE [Concomitant]
     Indication: HYPERTENSION
  10. MINOXIL [Concomitant]
     Indication: HYPERTENSION
  11. ISUPREL [Concomitant]
     Indication: ANGINA PECTORIS

REACTIONS (1)
  - RHABDOMYOLYSIS [None]
